FAERS Safety Report 9508000 (Version 2)
Quarter: 2014Q1

REPORT INFORMATION
  Report Type: Spontaneous
  Country: US (occurrence: None)
  Receive Date: 20130305
  Receipt Date: 20140306
  Transmission Date: 20141002
  Serious: Yes (Hospitalization, Other)
  Sender: FDA-Public Use
  Company Number: 163-21880-12051927

PATIENT
  Age: 87 Year
  Sex: Female

DRUGS (1)
  1. REVLIMID [Suspect]
     Indication: PLASMA CELL MYELOMA
     Dosage: 10 MG, 1 IN 1 D, PO
     Route: 048
     Dates: start: 20110120

REACTIONS (5)
  - Emphysema [None]
  - Dyspnoea [None]
  - Contusion [None]
  - Upper respiratory tract infection [None]
  - Fatigue [None]
